FAERS Safety Report 22285359 (Version 1)
Quarter: 2023Q2

REPORT INFORMATION
  Report Type: Spontaneous
  Country: TR (occurrence: TR)
  Receive Date: 20230504
  Receipt Date: 20230504
  Transmission Date: 20230722
  Serious: Yes (Hospitalization, Other)
  Sender: FDA-Public Use
  Company Number: TR-APIL-2308428US

PATIENT

DRUGS (1)
  1. BOTULINUM TOXIN TYPE A [Suspect]
     Active Substance: BOTULINUM TOXIN TYPE A
     Indication: Weight decreased
     Dosage: UNK UNK, SINGLE
     Dates: start: 202302, end: 202302

REACTIONS (2)
  - Botulism [Unknown]
  - Off label use [Unknown]
